FAERS Safety Report 5423730-1 (Version None)
Quarter: 2007Q3

REPORT INFORMATION
  Report Type: 
  Country: None (occurrence: None)
  Receive Date: 20070727
  Receipt Date: 20040831
  Transmission Date: 20080115
  Serious: Yes (Hospitalization)
  Sender: FDA-Public Use
  Company Number: THYM-10180

PATIENT
  Age: 72 Year
  Sex: Male
  Weight: 81.36 kg

DRUGS (11)
  1. THYMOGLOBULIN [Suspect]
     Indication: IMMUNOSUPPRESSION
     Dosage: 125 MG QD IV
     Route: 042
     Dates: start: 20040226, end: 20040227
  2. THYMOGLOBULIN [Suspect]
     Indication: RENAL TRANSPLANT
     Dosage: 125 MG QD IV
     Route: 042
     Dates: start: 20040226, end: 20040227
  3. THYMOGLOBULIN [Suspect]
     Indication: IMMUNOSUPPRESSION
     Dosage: 125 MG QD IV
     Route: 042
     Dates: start: 20040228
  4. THYMOGLOBULIN [Suspect]
     Indication: RENAL TRANSPLANT
     Dosage: 125 MG QD IV
     Route: 042
     Dates: start: 20040228
  5. DEMADEX [Concomitant]
  6. NEURONTIN [Concomitant]
  7. RENAGEL [Concomitant]
  8. CALCIUM CARBONATE [Concomitant]
  9. MULTI-VITAMIN [Concomitant]
  10. HUMULIN N [Concomitant]
  11. ASPIRIN [Concomitant]

REACTIONS (3)
  - CLOSTRIDIUM DIFFICILE TOXIN TEST POSITIVE [None]
  - RENAL TUBULAR NECROSIS [None]
  - SEPSIS [None]
